FAERS Safety Report 5194033-8 (Version None)
Quarter: 2006Q4

REPORT INFORMATION
  Report Type: 
  Country: None (occurrence: None)
  Receive Date: 20061221
  Receipt Date: 20061219
  Transmission Date: 20070319
  Serious: Yes (Other)
  Sender: FDA-Public Use
  Company Number: HQWYE736221DEC06

PATIENT
  Age: 57 Year
  Sex: Female
  Weight: 52.21 kg

DRUGS (5)
  1. PREMPRO [Suspect]
     Indication: HORMONE REPLACEMENT THERAPY
     Dosage: 0.3MG/1.5MG ONE TABLET DAILY
     Dates: start: 19920101
  2. PREMPRO [Suspect]
     Indication: HOT FLUSH
     Dosage: 0.3MG/1.5MG ONE TABLET DAILY
     Dates: start: 19920101
  3. ZIAC [Concomitant]
  4. TOPAMAX [Concomitant]
  5. IMITREX [Concomitant]

REACTIONS (4)
  - DIZZINESS [None]
  - DRUG INEFFECTIVE [None]
  - HOT FLUSH [None]
  - SKIN CANCER [None]
